FAERS Safety Report 17510839 (Version 1)
Quarter: 2020Q1

REPORT INFORMATION
  Report Type: Spontaneous
  Country: US (occurrence: US)
  Receive Date: 20200306
  Receipt Date: 20200306
  Transmission Date: 20200409
  Serious: Yes (Other)
  Sender: FDA-Public Use
  Company Number: US-TORRENT-00010057

PATIENT
  Age: 69 Year
  Sex: Female
  Weight: 77 kg

DRUGS (2)
  1. LOSARTAN. [Suspect]
     Active Substance: LOSARTAN
     Indication: HYPERTENSION
     Dosage: ONCE IN MORNING
     Route: 048
     Dates: start: 2018
  2. VALSARTAN. [Concomitant]
     Active Substance: VALSARTAN
     Indication: HYPERTENSION
     Dosage: ONCE A DAY

REACTIONS (9)
  - Pain in extremity [Unknown]
  - Chest pain [Unknown]
  - Musculoskeletal chest pain [Unknown]
  - Back pain [Unknown]
  - Cardiac discomfort [Unknown]
  - Dyspnoea [Unknown]
  - Cardiac disorder [Unknown]
  - Lung disorder [Unknown]
  - Breast pain [Unknown]

NARRATIVE: CASE EVENT DATE: 2019
